FAERS Safety Report 16639609 (Version 1)
Quarter: 2019Q3

REPORT INFORMATION
  Report Type: Spontaneous
  Country: US (occurrence: US)
  Receive Date: 20190614
  Receipt Date: 20190614
  Transmission Date: 20191004
  Serious: No
  Sender: FDA-Public Use
  Company Number: None

PATIENT
  Age: 81 Year
  Sex: Female

DRUGS (1)
  1. ERLOTINIB TABLET [Suspect]
     Active Substance: ERLOTINIB
     Dates: start: 201806

REACTIONS (2)
  - Therapeutic response changed [None]
  - Eye disorder [None]

NARRATIVE: CASE EVENT DATE: 20190614
